FAERS Safety Report 11075434 (Version 1)
Quarter: 2015Q2

REPORT INFORMATION
  Report Type: Spontaneous
  Country: US (occurrence: US)
  Receive Date: 20150429
  Receipt Date: 20150429
  Transmission Date: 20150821
  Serious: No
  Sender: FDA-Public Use
  Company Number: US-BIOGENIDEC-2015BI056788

PATIENT
  Sex: Female

DRUGS (13)
  1. BIOTIN [Concomitant]
     Active Substance: BIOTIN
  2. AMANTIDINE [Concomitant]
     Active Substance: AMANTADINE
  3. BUSPIRONE HCL [Concomitant]
     Active Substance: BUSPIRONE HYDROCHLORIDE
  4. DIPHENHYDRAMINE HCL [Concomitant]
     Active Substance: DIPHENHYDRAMINE HYDROCHLORIDE
  5. VIACTIV [Concomitant]
     Active Substance: CALCIUM\VITAMIN D\VITAMIN K5
  6. LISINOPRIL. [Concomitant]
     Active Substance: LISINOPRIL
  7. ATIVAN [Concomitant]
     Active Substance: LORAZEPAM
  8. EFFEXOR XR [Concomitant]
     Active Substance: VENLAFAXINE HYDROCHLORIDE
  9. TECFIDERA [Suspect]
     Active Substance: DIMETHYL FUMARATE
     Indication: MULTIPLE SCLEROSIS
     Route: 048
     Dates: start: 201501
  10. BACLOFEN. [Concomitant]
     Active Substance: BACLOFEN
  11. CLINDAMYCIN HCL [Concomitant]
     Active Substance: CLINDAMYCIN HYDROCHLORIDE
  12. DEXILANT [Concomitant]
     Active Substance: DEXLANSOPRAZOLE
  13. LABETALOL HCL [Concomitant]
     Active Substance: LABETALOL HYDROCHLORIDE

REACTIONS (1)
  - Visual impairment [Unknown]
